FAERS Safety Report 10557791 (Version 1)
Quarter: 2014Q4

REPORT INFORMATION
  Report Type: Report from Study
  Country: US (occurrence: US)
  Receive Date: 20141031
  Receipt Date: 20141031
  Transmission Date: 20150529
  Serious: Yes (Other)
  Sender: FDA-Public Use
  Company Number: US-SA-2014SA147224

PATIENT
  Sex: Male

DRUGS (1)
  1. LANTUS [Suspect]
     Active Substance: INSULIN GLARGINE
     Indication: TYPE 2 DIABETES MELLITUS
     Dosage: DOSE: 55 U IN AM AND 65 U IN PM.
     Route: 065

REACTIONS (3)
  - Localised infection [Unknown]
  - Inappropriate schedule of drug administration [Unknown]
  - Glycosylated haemoglobin increased [Unknown]
